FAERS Safety Report 24255017 (Version 1)
Quarter: 2024Q3

REPORT INFORMATION
  Report Type: Spontaneous
  Country: US (occurrence: US)
  Receive Date: 20240827
  Receipt Date: 20240827
  Transmission Date: 20241017
  Serious: Yes (Hospitalization)
  Sender: PFIZER
  Company Number: US-PFIZER INC-202400242922

PATIENT
  Age: 50 Year
  Sex: Female
  Weight: 55.34 kg

DRUGS (1)
  1. LOMOTIL [Suspect]
     Active Substance: ATROPINE SULFATE\DIPHENOXYLATE HYDROCHLORIDE
     Indication: Colitis ulcerative
     Dosage: 2.5MG TABLET UP TO TWO TABLETS A DAY

REACTIONS (4)
  - Dehydration [Unknown]
  - Chills [Unknown]
  - Feeling abnormal [Unknown]
  - Off label use [Unknown]
